FAERS Safety Report 6155609-4 (Version None)
Quarter: 2009Q2

REPORT INFORMATION
  Report Type: 
  Country: None (occurrence: None)
  Receive Date: 20090415
  Receipt Date: 20090331
  Transmission Date: 20091009
  Serious: Yes (Hospitalization)
  Sender: FDA-Public Use
  Company Number: ES-PFIZER INC-2009191387

PATIENT

DRUGS (4)
  1. SUNITINIB MALATE [Suspect]
     Indication: RENAL CANCER
     Dosage: 50 MG, 1X/DAY
     Route: 048
     Dates: start: 20081218, end: 20090220
  2. DILTIAZEM [Concomitant]
     Indication: HYPERTENSION
     Dosage: 120 MG, 1X/DAY
     Route: 048
  3. NORPRAMIN [Concomitant]
     Indication: GASTRITIS PROPHYLAXIS
     Dosage: 20 MG, 1X/DAY
     Route: 048
  4. DEXAMETHASONE [Concomitant]
     Indication: BRAIN OEDEMA
     Dosage: 8 MG, 1X/DAY
     Route: 048

REACTIONS (5)
  - AORTIC THROMBOSIS [None]
  - CHOLECYSTITIS [None]
  - CYSTITIS [None]
  - NEUTROPENIA [None]
  - THROMBOCYTOPENIA [None]
